FAERS Safety Report 10031249 (Version 2)
Quarter: 2014Q1

REPORT INFORMATION
  Report Type: Spontaneous
  Country: CA (occurrence: CA)
  Receive Date: 20140324
  Receipt Date: 20140324
  Transmission Date: 20141002
  Serious: Yes (Other)
  Sender: FDA-Public Use
  Company Number: CA-AMGEN-CANSP2014018713

PATIENT
  Age: 35 Year
  Sex: Female

DRUGS (2)
  1. ENBREL [Suspect]
     Indication: ANKYLOSING SPONDYLITIS
     Dosage: 50 MG, QWK
     Route: 058
     Dates: start: 20121026, end: 201311
  2. ASPIRIN [Concomitant]
     Dosage: UNK

REACTIONS (3)
  - Immunodeficiency [Unknown]
  - Malaise [Unknown]
  - Therapeutic response decreased [Unknown]
